FAERS Safety Report 12489302 (Version 2)
Quarter: 2016Q3

REPORT INFORMATION
  Report Type: Report from Study
  Country: JP (occurrence: JP)
  Receive Date: 20160622
  Receipt Date: 20160719
  Transmission Date: 20161109
  Serious: No
  Sender: FDA-Public Use
  Company Number: JP-UCBSA-2016003322

PATIENT
  Sex: Female

DRUGS (20)
  1. CERTOLIZUMAB PEGOL RA [Suspect]
     Active Substance: CERTOLIZUMAB PEGOL
     Dosage: 200 MG, EV 2 WEEKS(QOW)
     Route: 058
     Dates: start: 20140730
  2. LOXONIN [Concomitant]
     Active Substance: LOXOPROFEN SODIUM
     Indication: RHEUMATOID ARTHRITIS
     Dosage: 60 MG/DOSE, AS NEEDED (PRN)
     Route: 048
     Dates: start: 20141105, end: 20150609
  3. PREDONINE [Concomitant]
     Active Substance: PREDNISOLONE\PREDNISOLONE ACETATE\PREDNISOLONE SODIUM SUCCINATE
     Indication: RHEUMATOID ARTHRITIS
     Dosage: 20 MG/ 2 DAYS
     Route: 048
     Dates: end: 20140630
  4. LOXONIN [Concomitant]
     Active Substance: LOXOPROFEN SODIUM
     Dosage: 180 MG/DAY
     Route: 048
     Dates: start: 2015, end: 20150908
  5. RHEUMATREX [Concomitant]
     Active Substance: METHOTREXATE SODIUM
     Indication: RHEUMATOID ARTHRITIS
     Dosage: 14 MG, WEEKLY (QW)
     Route: 048
     Dates: end: 20140824
  6. PREDONINE [Concomitant]
     Active Substance: PREDNISOLONE\PREDNISOLONE ACETATE\PREDNISOLONE SODIUM SUCCINATE
     Dosage: 6 MG/DAY
     Route: 048
     Dates: start: 20160120, end: 20160424
  7. LOXONIN [Concomitant]
     Active Substance: LOXOPROFEN SODIUM
     Dosage: 180 MG/DAY
     Route: 048
     Dates: start: 20150610, end: 20150714
  8. PREDONINE [Concomitant]
     Active Substance: PREDNISOLONE\PREDNISOLONE ACETATE\PREDNISOLONE SODIUM SUCCINATE
     Dosage: 6 MG/DAY
     Route: 048
     Dates: start: 20150610, end: 20150714
  9. PREDONINE [Concomitant]
     Active Substance: PREDNISOLONE\PREDNISOLONE ACETATE\PREDNISOLONE SODIUM SUCCINATE
     Dosage: 5 MG/2 DAYS
     Route: 048
     Dates: start: 20140730, end: 20141211
  10. PREDONINE [Concomitant]
     Active Substance: PREDNISOLONE\PREDNISOLONE ACETATE\PREDNISOLONE SODIUM SUCCINATE
     Dosage: 15 MG/2 DAYS
     Route: 048
     Dates: start: 20140701, end: 20140715
  11. PREDONINE [Concomitant]
     Active Substance: PREDNISOLONE\PREDNISOLONE ACETATE\PREDNISOLONE SODIUM SUCCINATE
     Dosage: 10 MG/2 DAYS
     Route: 048
     Dates: start: 20140716, end: 20140729
  12. PREDONINE [Concomitant]
     Active Substance: PREDNISOLONE\PREDNISOLONE ACETATE\PREDNISOLONE SODIUM SUCCINATE
     Dosage: 2.5 MG/DAY
     Route: 048
     Dates: start: 20150105, end: 20150323
  13. PREDONINE [Concomitant]
     Active Substance: PREDNISOLONE\PREDNISOLONE ACETATE\PREDNISOLONE SODIUM SUCCINATE
     Dosage: 8 MG/DAY
     Route: 048
     Dates: start: 20150715, end: 20150908
  14. CERTOLIZUMAB PEGOL RA [Suspect]
     Active Substance: CERTOLIZUMAB PEGOL
     Indication: RHEUMATOID ARTHRITIS
     Dosage: 400 MG, EV 2 WEEKS(QOW)
     Route: 058
     Dates: start: 20140616, end: 20140716
  15. RHEUMATREX [Concomitant]
     Active Substance: METHOTREXATE SODIUM
     Dosage: 16 MG, WEEKLY (QW)
     Route: 048
     Dates: start: 20140825, end: 20141211
  16. RHEUMATREX [Concomitant]
     Active Substance: METHOTREXATE SODIUM
     Dosage: 12 MG, WEEKLY (QW)
     Route: 048
     Dates: start: 20141212, end: 20150104
  17. PREDONINE [Concomitant]
     Active Substance: PREDNISOLONE\PREDNISOLONE ACETATE\PREDNISOLONE SODIUM SUCCINATE
     Dosage: 4 MG/DAY
     Route: 048
     Dates: start: 20150408, end: 20150609
  18. PREDONINE [Concomitant]
     Active Substance: PREDNISOLONE\PREDNISOLONE ACETATE\PREDNISOLONE SODIUM SUCCINATE
     Dosage: 7 MG/DAY
     Route: 048
     Dates: start: 20150910, end: 20160119
  19. RHEUMATREX [Concomitant]
     Active Substance: METHOTREXATE SODIUM
     Dosage: 10 MG, WEEKLY (QW)
     Route: 048
     Dates: start: 20150105, end: 20150204
  20. PREDONINE [Concomitant]
     Active Substance: PREDNISOLONE\PREDNISOLONE ACETATE\PREDNISOLONE SODIUM SUCCINATE
     Dosage: 2.5 MG/2 DAYS
     Route: 048
     Dates: start: 20141212, end: 20141215

REACTIONS (2)
  - Breast feeding [Unknown]
  - Pregnancy [Unknown]

NARRATIVE: CASE EVENT DATE: 2015
